FAERS Safety Report 8772766 (Version 3)
Quarter: 2013Q3

REPORT INFORMATION
  Report Type: Report from Study
  Country: JP (occurrence: JP)
  Receive Date: 20120907
  Receipt Date: 20130910
  Transmission Date: 20140515
  Serious: Yes (Other)
  Sender: FDA-Public Use
  Company Number: JP-VERTEX PHARMACEUTICAL INC.-AE-2012-008527

PATIENT
  Age: 74 Year
  Sex: Male

DRUGS (11)
  1. VX-950 (TELAPREVIR) [Suspect]
     Indication: CHRONIC HEPATITIS C
     Dosage: 1500 MG, QD
     Route: 048
     Dates: start: 20120529, end: 20120608
  2. PEGINTRON [Suspect]
     Indication: CHRONIC HEPATITIS C
     Dosage: 0.69 ?G/KG, QW
     Route: 058
     Dates: start: 20120529, end: 20120605
  3. PEGINTRON [Suspect]
     Dosage: 0.69 ?G/KG, QW
     Route: 058
     Dates: end: 20120608
  4. RIBAVIRIN [Concomitant]
     Dosage: 600 MG, QD
     Route: 048
     Dates: start: 20120529, end: 20120605
  5. RIBAVIRIN [Concomitant]
     Dosage: 400 MG, QD
     Route: 048
     Dates: start: 20120606, end: 20120608
  6. VEGETAMIN A [Concomitant]
     Dosage: 1 DF, QD
     Route: 048
  7. LEVOTOMIN [Concomitant]
     Dosage: 5 MG, QD
     Route: 048
  8. ISOMYTAL [Concomitant]
     Dosage: 1 DF, QD
     Route: 048
  9. BROVARIN [Concomitant]
     Dosage: 1 DF, QD
     Route: 048
  10. HALRACK [Concomitant]
     Dosage: 0.125 MG, QD
     Route: 048
  11. AMINOLEBAN [Concomitant]
     Indication: HEPATIC FAILURE
     Dosage: 500 ML, QD
     Route: 042
     Dates: start: 20120607, end: 20120613

REACTIONS (4)
  - Hepatic encephalopathy [Recovered/Resolved]
  - Dizziness [Recovered/Resolved]
  - Restlessness [Recovered/Resolved]
  - Neutrophil count decreased [Not Recovered/Not Resolved]
